FAERS Safety Report 10948170 (Version 1)
Quarter: 2015Q1

REPORT INFORMATION
  Report Type: Spontaneous
  Country: US (occurrence: US)
  Receive Date: 20150324
  Receipt Date: 20150324
  Transmission Date: 20150721
  Serious: No
  Sender: FDA-Public Use
  Company Number: US-BIOGENIDEC-2015BI019324

PATIENT
  Age: 51 Year
  Sex: Female

DRUGS (1)
  1. AVONEX [Suspect]
     Active Substance: INTERFERON BETA-1A
     Indication: MULTIPLE SCLEROSIS
     Route: 030

REACTIONS (3)
  - Uterine leiomyoma [Not Recovered/Not Resolved]
  - Diverticulitis [Not Recovered/Not Resolved]
  - Multiple allergies [Not Recovered/Not Resolved]

NARRATIVE: CASE EVENT DATE: 20150205
